FAERS Safety Report 7290720-6 (Version None)
Quarter: 2011Q1

REPORT INFORMATION
  Report Type: 
  Country: None (occurrence: None)
  Receive Date: 20110210
  Receipt Date: 20110210
  Transmission Date: 20110831
  Serious: No
  Sender: FDA-Public Use
  Company Number: None

PATIENT
  Sex: Male
  Weight: 102.3 kg

DRUGS (10)
  1. METHOTREXATE [Suspect]
     Dosage: 60 MG
     Dates: end: 20100702
  2. PEG-L ASPARAGINASE (PEGASPARGASE, ONCOSPAR) [Suspect]
     Dosage: 11275 IU
     Dates: end: 20100726
  3. BACTRIM [Concomitant]
  4. HEPARIN [Concomitant]
  5. PREVACID [Concomitant]
  6. VINCRISTINE SULFATE [Concomitant]
     Dosage: 8 MG
     Dates: end: 20100802
  7. CYTARABINE [Suspect]
     Dosage: 2712 MG
     Dates: end: 20100722
  8. CYCLOPHOSPHAMIDE [Suspect]
     Dosage: 4530 MG
     Dates: end: 20100712
  9. ATIGAL [Concomitant]
  10. MERCAPTOPURINE [Suspect]
     Dosage: 3800 MG
     Dates: end: 20100725

REACTIONS (6)
  - BLOOD CHOLESTEROL INCREASED [None]
  - ASPARTATE AMINOTRANSFERASE INCREASED [None]
  - ALANINE AMINOTRANSFERASE INCREASED [None]
  - BLOOD TRIGLYCERIDES INCREASED [None]
  - HYPERBILIRUBINAEMIA [None]
  - BLOOD GLUCOSE INCREASED [None]
